FAERS Safety Report 9084446 (Version 1)
Quarter: 2013Q1

REPORT INFORMATION
  Report Type: Spontaneous
  Country: AT (occurrence: AT)
  Receive Date: 20130131
  Receipt Date: 20130131
  Transmission Date: 20140127
  Serious: Yes (Other)
  Sender: FDA-Public Use
  Company Number: AT-ROCHE-1177640

PATIENT
  Sex: Female

DRUGS (4)
  1. PEGASYS [Suspect]
     Indication: HEPATITIS C
     Route: 065
     Dates: end: 20130107
  2. RIBAVIRIN [Suspect]
     Indication: HEPATITIS C
     Route: 065
     Dates: end: 20130107
  3. BOCEPREVIR [Suspect]
     Indication: HEPATITIS C
     Route: 065
     Dates: end: 20130107
  4. SILIBININ [Suspect]
     Indication: HEPATITIS C
     Route: 065

REACTIONS (2)
  - Osteonecrosis [Unknown]
  - Arthralgia [Unknown]
